FAERS Safety Report 10101358 (Version 1)
Quarter: 2014Q2

REPORT INFORMATION
  Report Type: Spontaneous
  Country: US (occurrence: None)
  Receive Date: 20140422
  Receipt Date: 20140422
  Transmission Date: 20141212
  Serious: Yes (Life-Threatening, Hospitalization, Other)
  Sender: FDA-Public Use
  Company Number: ADR-2014-00654

PATIENT
  Age: 74 Year
  Sex: Female

DRUGS (3)
  1. COMPOUNDED BACLOFEN [Suspect]
     Dosage: 876.4 MCG/DAY
  2. DILAUDID INTRATHECAL [Suspect]
     Dosage: 3.26 MG/DAY
  3. DIAZEPAM [Suspect]

REACTIONS (6)
  - Overdose [None]
  - Coma [None]
  - Loss of consciousness [None]
  - Musculoskeletal chest pain [None]
  - Hypopnoea [None]
  - Respiratory acidosis [None]
